FAERS Safety Report 7169953-5 (Version None)
Quarter: 2010Q4

REPORT INFORMATION
  Report Type: 
  Country: None (occurrence: None)
  Receive Date: 20101217
  Receipt Date: 20101214
  Transmission Date: 20110411
  Serious: Yes (Disabling, Other)
  Sender: FDA-Public Use
  Company Number: DE-BRISTOL-MYERS SQUIBB COMPANY-15348311

PATIENT
  Age: 70 Year
  Sex: Female
  Weight: 68 kg

DRUGS (1)
  1. KARVEA TABS 150 MG [Suspect]
     Indication: HYPERTENSION
     Route: 048
     Dates: start: 19980101

REACTIONS (4)
  - ANGINA PECTORIS [None]
  - CARDIAC FAILURE [None]
  - MOBILITY DECREASED [None]
  - TINNITUS [None]
